FAERS Safety Report 19797770 (Version 2)
Quarter: 2022Q2

REPORT INFORMATION
  Report Type: Spontaneous
  Country: US (occurrence: US)
  Receive Date: 20210907
  Receipt Date: 20220519
  Transmission Date: 20220720
  Serious: No
  Sender: FDA-Public Use
  Company Number: US-PFIZER INC-2020453892

PATIENT
  Age: 46 Year
  Sex: Female

DRUGS (1)
  1. IBRANCE [Suspect]
     Active Substance: PALBOCICLIB
     Indication: Breast cancer female
     Dosage: 125 MG

REACTIONS (6)
  - Memory impairment [Unknown]
  - Dysstasia [Unknown]
  - Pain in extremity [Unknown]
  - Burning sensation [Unknown]
  - Asthenia [Unknown]
  - Peripheral swelling [Unknown]
